FAERS Safety Report 6168027-X (Version None)
Quarter: 2009Q2

REPORT INFORMATION
  Report Type: 
  Country: None (occurrence: None)
  Receive Date: 20090423
  Receipt Date: 20090423
  Transmission Date: 20091009
  Serious: Yes (Other)
  Sender: FDA-Public Use
  Company Number: None

PATIENT
  Age: 60 Year
  Sex: Male

DRUGS (3)
  1. SEROQUEL [Suspect]
     Indication: PSYCHOTIC DISORDER
     Dosage: 200 MG ONCE DAILY PO
     Route: 048
  2. SEROQUEL [Suspect]
     Indication: SCHIZOPHRENIA
     Dosage: 200 MG ONCE DAILY PO
     Route: 048
  3. SEROQUEL [Suspect]
     Indication: ANXIETY DISORDER
     Dosage: 300 MG ONCE DAILY PO
     Route: 048

REACTIONS (1)
  - DYSTONIA [None]
